FAERS Safety Report 10707435 (Version 1)
Quarter: 2015Q1

REPORT INFORMATION
  Report Type: Spontaneous
  Country: US (occurrence: None)
  Receive Date: 20150112
  Receipt Date: 20150112
  Transmission Date: 20150721
  Serious: Yes (Hospitalization)
  Sender: FDA-Public Use
  Company Number: None

PATIENT
  Age: 81 Year
  Sex: Male
  Weight: 69.1 kg

DRUGS (2)
  1. ABIRATERONE [Suspect]
     Active Substance: ABIRATERONE
     Dates: end: 20141219
  2. PREDNISONE. [Suspect]
     Active Substance: PREDNISONE
     Dates: end: 20141219

REACTIONS (5)
  - Sputum discoloured [None]
  - Hypokalaemia [None]
  - Chills [None]
  - Pneumonia [None]
  - Productive cough [None]

NARRATIVE: CASE EVENT DATE: 20141219
